FAERS Safety Report 8788892 (Version 3)
Quarter: 2013Q4

REPORT INFORMATION
  Report Type: Spontaneous
  Country: GB (occurrence: GB)
  Receive Date: 20120915
  Receipt Date: 20131004
  Transmission Date: 20140711
  Serious: Yes (Life-Threatening, Hospitalization, Other)
  Sender: FDA-Public Use
  Company Number: GB-009507513-1209GBR002480

PATIENT
  Age: 1 Day
  Sex: Male
  Weight: 2.2 kg

DRUGS (9)
  1. ZISPIN SOLTAB [Suspect]
     Indication: ANXIETY
     Dosage: 30 MG, QD
     Route: 064
     Dates: start: 20110930, end: 20120320
  2. ZISPIN SOLTAB [Suspect]
     Indication: DEPRESSION
  3. DIACETYLMORPHINE [Concomitant]
     Dosage: UNK
     Route: 064
  4. DIAZEPAM [Concomitant]
     Indication: ANXIETY
     Dosage: 2 MG, TID
     Route: 064
     Dates: start: 20111123, end: 20121206
  5. FERROUS FUMARATE [Concomitant]
     Indication: IRON DEFICIENCY
     Dosage: 210 MG, BID
     Route: 064
     Dates: start: 20111117, end: 20111123
  6. FOLIC ACID [Concomitant]
     Indication: PROPHYLAXIS
     Dosage: 5 MG, QD
     Route: 064
     Dates: start: 20111116, end: 20120216
  7. GABAPENTIN [Concomitant]
     Dosage: UNK
     Route: 064
  8. RANITIDINE [Concomitant]
     Dosage: UNK
     Route: 064
  9. SODIUM FEREDETATE [Concomitant]
     Indication: IRON DEFICIENCY
     Dosage: 10 ML DAILY
     Route: 064
     Dates: start: 20111123, end: 20120408

REACTIONS (5)
  - Respiratory disorder neonatal [Recovered/Resolved]
  - Sepsis [Recovered/Resolved]
  - Jaundice neonatal [Unknown]
  - Premature baby [Unknown]
  - Foetal exposure during pregnancy [Unknown]
